FAERS Safety Report 6354571-9 (Version None)
Quarter: 2009Q3

REPORT INFORMATION
  Report Type: 
  Country: None (occurrence: None)
  Receive Date: 20090909
  Receipt Date: 20090828
  Transmission Date: 20100115
  Serious: Yes (Hospitalization)
  Sender: FDA-Public Use
  Company Number: CHPA2009US17911

PATIENT
  Age: 78 Year
  Sex: Female

DRUGS (9)
  1. FERROUS SULFATE TAB [Suspect]
     Indication: ANAEMIA
     Dosage: 160 MG BID, ORAL
     Route: 048
     Dates: end: 20090818
  2. FERROUS SULFATE TAB [Suspect]
     Indication: ANAEMIA
     Dosage: 160 MG BID, ORAL
     Route: 048
     Dates: start: 20090818
  3. SYNTHROID [Concomitant]
  4. BABY ASPRINE (ACETYLSALICYLIC ACID) [Concomitant]
  5. VYTORIN (EZETIMIB, SIMVASTATIN) [Concomitant]
  6. DOVAN ^CIBA-GEIGY^ (VALSARTAN) [Concomitant]
  7. COR-VEL (ARNICA EXTRACT, ARNICA MONTANA EXTRACT, BRASSICA NIGRA SEED O [Concomitant]
  8. ZYRTEC [Concomitant]
  9. PRILOSEC [Concomitant]

REACTIONS (7)
  - BLOOD COUNT ABNORMAL [None]
  - BLOOD PRESSURE INCREASED [None]
  - CONCOMITANT DISEASE AGGRAVATED [None]
  - HAEMATOCHEZIA [None]
  - HEART RATE DECREASED [None]
  - INTESTINAL OBSTRUCTION [None]
  - SYNCOPE [None]
